FAERS Safety Report 20348236 (Version 3)
Quarter: 2022Q1

REPORT INFORMATION
  Report Type: Report from Study
  Country: CH (occurrence: CH)
  Receive Date: 20220119
  Receipt Date: 20220210
  Transmission Date: 20220423
  Serious: Yes (Hospitalization)
  Sender: FDA-Public Use
  Company Number: CH-ABBVIE-22K-151-4238175-00

PATIENT
  Age: 73 Year
  Sex: Male

DRUGS (6)
  1. CARBIDOPA\LEVODOPA [Suspect]
     Active Substance: CARBIDOPA\LEVODOPA
     Indication: Parkinson^s disease
     Dosage: MD: 1.0 ML, CRD: 2.9 ML/H, CRN: 0 ML/H, ED: 1.0 ML16H THERAPY
     Route: 050
     Dates: start: 20201214, end: 20201215
  2. CARBIDOPA\LEVODOPA [Suspect]
     Active Substance: CARBIDOPA\LEVODOPA
     Dosage: MD: 2.0 ML, CRD: 3.3 ML/H, CRN: 2.2 ML/H, ED: 1.5 ML/24H THERAPY
     Route: 050
     Dates: start: 20201215, end: 20201216
  3. CARBIDOPA\LEVODOPA [Suspect]
     Active Substance: CARBIDOPA\LEVODOPA
     Dosage: MD: 2.0 ML, CRD: 3.6 ML/H, CRN: 2.3 ML/H, ED: 2.0 ML24H THERAPY
     Route: 050
     Dates: start: 20201216, end: 20201228
  4. CARBIDOPA\LEVODOPA [Suspect]
     Active Substance: CARBIDOPA\LEVODOPA
     Dosage: MD: 2.0 ML, CRD: 3.6 ML/H, CRN: 2.3 ML/H, ED: 2.0 ML/24H THERAPY
     Route: 050
     Dates: start: 20201228, end: 20210413
  5. CARBIDOPA\LEVODOPA [Suspect]
     Active Substance: CARBIDOPA\LEVODOPA
     Dosage: MD: 5.0 ML, CRD: 3.3 ML/H, CRN: 2.3 ML/H, ED: 2.0 ML/24H THERAPY
     Route: 050
     Dates: start: 20210414, end: 20220115
  6. CARBIDOPA\LEVODOPA [Suspect]
     Active Substance: CARBIDOPA\LEVODOPA
     Dosage: MD: 5.0 ML, CRD: 3.3 ML/H, CRN: 2.3 ML/H, ED: 2.0 ML/24H THERAPY?24H THERAPY
     Route: 050
     Dates: start: 20220119

REACTIONS (1)
  - Device expulsion [Recovered/Resolved]

NARRATIVE: CASE EVENT DATE: 20220115
